FAERS Safety Report 20903698 (Version 7)
Quarter: 2023Q1

REPORT INFORMATION
  Report Type: Report from Study
  Country: CO (occurrence: CO)
  Receive Date: 20220602
  Receipt Date: 20230309
  Transmission Date: 20230418
  Serious: Yes (Other)
  Sender: FDA-Public Use
  Company Number: CO-NOVARTISPH-NVSC2022CO123543

PATIENT
  Sex: Male
  Weight: 64 kg

DRUGS (5)
  1. COSENTYX [Suspect]
     Active Substance: SECUKINUMAB
     Indication: Ankylosing spondylitis
     Dosage: 300 MG, QMO (4 YEARS AGO)
     Route: 058
  2. COSENTYX [Suspect]
     Active Substance: SECUKINUMAB
     Dosage: 300 MG, QMO
     Route: 058
  3. CALCIUM [Concomitant]
     Active Substance: CALCIUM
     Indication: Supplementation therapy
     Dosage: UNK, QD (24 HOURS), (7 YEARS AGO)
     Route: 048
  4. CALCITRIOL [Concomitant]
     Active Substance: CALCITRIOL
     Indication: Supplementation therapy
     Dosage: UNK, QD (24 HOURS), (7 YEARS AGO)
     Route: 048
  5. ESOMEPRAZOLE [Concomitant]
     Active Substance: ESOMEPRAZOLE
     Indication: Product used for unknown indication
     Dosage: UNK, QD (24 HOURS), (7 YEARS AGO)
     Route: 048

REACTIONS (15)
  - Rectal haemorrhage [Not Recovered/Not Resolved]
  - Pain [Recovered/Resolved]
  - Gait disturbance [Recovered/Resolved]
  - Muscle rigidity [Recovered/Resolved]
  - Arthritis [Recovered/Resolved]
  - Inflammation [Recovered/Resolved]
  - Proctalgia [Unknown]
  - Haemorrhoids [Unknown]
  - Movement disorder [Unknown]
  - Constipation [Unknown]
  - Rectal fissure [Unknown]
  - Purulence [Unknown]
  - Anal fistula [Unknown]
  - Wound [Unknown]
  - Influenza [Unknown]
